FAERS Safety Report 8661224 (Version 4)
Quarter: 2012Q4

REPORT INFORMATION
  Report Type: 
  Country: US (occurrence: US)
  Receive Date: 20120712
  Receipt Date: 20121012
  Transmission Date: 20130627
  Serious: Yes (Hospitalization)
  Sender: FDA-Public Use
  Company Number: US-BIOGENIDEC-2012BI023887

PATIENT
  Age: 48 Year
  Sex: Female

DRUGS (15)
  1. TYSABRI [Suspect]
     Indication: MULTIPLE SCLEROSIS
     Route: 042
     Dates: start: 20111014, end: 20120626
  2. VITAMIN B12 [Concomitant]
  3. VITAMIN D [Concomitant]
  4. VITAMIN E [Concomitant]
  5. OXYCODONE [Concomitant]
     Indication: PAIN
  6. ZOFRAN [Concomitant]
     Indication: NAUSEA
  7. ZOFRAN [Concomitant]
     Indication: VOMITING
  8. COLACE [Concomitant]
     Indication: CONSTIPATION
  9. MIRALAX [Concomitant]
     Indication: CONSTIPATION
  10. SENOKOT [Concomitant]
     Indication: CONSTIPATION
  11. NEURONTIN [Concomitant]
     Indication: NEUROPATHY PERIPHERAL
  12. DITROPAN [Concomitant]
     Indication: URINARY INCONTINENCE
  13. POTASSIUM [Concomitant]
  14. KEPPRA [Concomitant]
     Indication: CONVULSION
  15. MOTRIN [Concomitant]
     Indication: PAIN

REACTIONS (3)
  - Multiple sclerosis relapse [Not Recovered/Not Resolved]
  - General symptom [Unknown]
  - Weight decreased [Not Recovered/Not Resolved]
